FAERS Safety Report 7875070-9 (Version None)
Quarter: 2011Q4

REPORT INFORMATION
  Report Type: 
  Country: None (occurrence: None)
  Receive Date: 20111031
  Receipt Date: 20111020
  Transmission Date: 20120403
  Serious: Yes (Hospitalization)
  Sender: FDA-Public Use
  Company Number: US-BIOGENIDEC-2010BI006679

PATIENT
  Age: 48 Year
  Sex: Female

DRUGS (9)
  1. BACLOFEN [Concomitant]
     Route: 048
  2. TYSABRI [Suspect]
     Route: 042
     Dates: start: 20110501
  3. ONDANSETRON [Concomitant]
     Route: 048
  4. TYSABRI [Suspect]
     Indication: MULTIPLE SCLEROSIS
     Route: 042
     Dates: start: 20090311, end: 20100901
  5. VANCOMYCIN [Concomitant]
     Route: 042
  6. DEPAKOTE [Concomitant]
     Route: 048
  7. OXYBUTYNIN [Concomitant]
     Route: 048
  8. FOSAMAX [Concomitant]
     Route: 048
  9. GABAPENTIN [Concomitant]

REACTIONS (1)
  - OSTEOMYELITIS [None]
